FAERS Safety Report 7484053-2 (Version None)
Quarter: 2011Q2

REPORT INFORMATION
  Report Type: 
  Country: None (occurrence: None)
  Receive Date: 20110517
  Receipt Date: 20110405
  Transmission Date: 20111010
  Serious: Yes (Hospitalization)
  Sender: FDA-Public Use
  Company Number: KR-AMGEN-KORCT2010005588

PATIENT
  Age: 53 Year
  Sex: Female

DRUGS (1)
  1. PANITUMUMAB [Suspect]
     Indication: COLORECTAL CANCER

REACTIONS (2)
  - RECTAL HAEMORRHAGE [None]
  - HEPATIC FUNCTION ABNORMAL [None]
